FAERS Safety Report 7291650-6 (Version None)
Quarter: 2011Q1

REPORT INFORMATION
  Report Type: 
  Country: None (occurrence: None)
  Receive Date: 20110210
  Receipt Date: 20110210
  Transmission Date: 20110831
  Serious: Yes (Other)
  Sender: FDA-Public Use
  Company Number: None

PATIENT
  Age: 57 Year
  Sex: Male
  Weight: 63 kg

DRUGS (2)
  1. LEVOFLOXACIN [Suspect]
     Indication: PNEUMONIA
     Dosage: 750MG DAILY PO
     Route: 048
     Dates: start: 20110106, end: 20110108
  2. SIMVASTATIN [Concomitant]

REACTIONS (1)
  - TENDONITIS [None]
